FAERS Safety Report 26168788 (Version 1)
Quarter: 2025Q4

REPORT INFORMATION
  Report Type: Spontaneous
  Country: RU (occurrence: RU)
  Receive Date: 20251217
  Receipt Date: 20251217
  Transmission Date: 20260118
  Serious: Yes (Other)
  Sender: ROCHE
  Company Number: RU-ROCHE-10000460671

PATIENT
  Age: 43 Year
  Sex: Female

DRUGS (2)
  1. ALECTINIB [Suspect]
     Active Substance: ALECTINIB
     Indication: Non-small cell lung cancer
     Dates: start: 20211101
  2. ALECTINIB [Suspect]
     Active Substance: ALECTINIB
     Dates: start: 20211217

REACTIONS (1)
  - Hepatitis toxic [Recovered/Resolved]
